FAERS Safety Report 7098608-0 (Version None)
Quarter: 2010Q4

REPORT INFORMATION
  Report Type: 
  Country: None (occurrence: None)
  Receive Date: 20101112
  Receipt Date: 20101102
  Transmission Date: 20110411
  Serious: Yes (Other)
  Sender: FDA-Public Use
  Company Number: US-JNJFOC-20101003070

PATIENT
  Sex: Female
  Weight: 81.19 kg

DRUGS (8)
  1. REMICADE [Suspect]
     Indication: RHEUMATOID ARTHRITIS
     Route: 042
  2. REMICADE [Suspect]
     Route: 042
  3. REMICADE [Suspect]
     Route: 042
  4. LEVOTHYROXINE [Concomitant]
     Indication: THYROID DISORDER
     Dosage: 100 MCG
     Route: 048
  5. METHOTREXATE [Concomitant]
     Indication: RHEUMATOID ARTHRITIS
     Route: 048
  6. FOLIC ACID [Concomitant]
     Route: 048
  7. PREDNISONE [Concomitant]
     Indication: RHEUMATOID ARTHRITIS
     Route: 048
  8. CITRACAL [Concomitant]
     Indication: BLOOD CALCIUM
     Route: 048

REACTIONS (6)
  - CHEST DISCOMFORT [None]
  - FORMICATION [None]
  - INFUSION RELATED REACTION [None]
  - SMEAR CERVIX ABNORMAL [None]
  - SUBCUTANEOUS NODULE [None]
  - THROAT TIGHTNESS [None]
